FAERS Safety Report 20028497 (Version 2)
Quarter: 2022Q1

REPORT INFORMATION
  Report Type: Report from Study
  Country: CA (occurrence: CA)
  Receive Date: 20211103
  Receipt Date: 20220128
  Transmission Date: 20220423
  Serious: Yes (Death)
  Sender: FDA-Public Use
  Company Number: CA-CELGENE-CAN-20211100240

PATIENT
  Age: 76 Year
  Sex: Male

DRUGS (1)
  1. INREBIC [Suspect]
     Active Substance: FEDRATINIB HYDROCHLORIDE
     Indication: Product used for unknown indication
     Dosage: 400 MILLIGRAM
     Route: 048
     Dates: start: 20211014

REACTIONS (1)
  - Death [Fatal]

NARRATIVE: CASE EVENT DATE: 20211001
